FAERS Safety Report 20393330 (Version 3)
Quarter: 2022Q2

REPORT INFORMATION
  Report Type: Spontaneous
  Country: US (occurrence: None)
  Receive Date: 20220128
  Receipt Date: 20220412
  Transmission Date: 20220721
  Serious: Yes (Hospitalization, Other)
  Sender: FDA-Public Use
  Company Number: US-ROCHE-3006286

PATIENT
  Sex: Female
  Weight: 119.40 kg

DRUGS (8)
  1. OCREVUS [Suspect]
     Active Substance: OCRELIZUMAB
     Indication: Multiple sclerosis
     Dosage: THIS WAS A ^  HALF DOSE^ ;ONGOING: NO
     Route: 042
     Dates: start: 20200430
  2. OCREVUS [Suspect]
     Active Substance: OCRELIZUMAB
     Dosage: THIS WAS A ^ HALF DOSE^ ;ONGOING: NO
     Route: 042
     Dates: start: 20200514
  3. OCREVUS [Suspect]
     Active Substance: OCRELIZUMAB
     Dosage: THIS WAS A ^ FULL DOSE^ ;ONGOING: NO
     Route: 042
     Dates: start: 20201112
  4. OCREVUS [Suspect]
     Active Substance: OCRELIZUMAB
     Dosage: THIS WAS THE LAST ^ FULL DOSE^ ;ONGOING: NO
     Route: 042
     Dates: start: 20210514
  5. DANTROLENE SODIUM [Suspect]
     Active Substance: DANTROLENE SODIUM
     Indication: Product used for unknown indication
     Route: 065
  6. LEVOTHYROXINE [Concomitant]
     Active Substance: LEVOTHYROXINE
     Route: 048
     Dates: start: 2015
  7. HYDROCHLOROTHIAZIDE [Concomitant]
     Active Substance: HYDROCHLOROTHIAZIDE
     Indication: Blood pressure increased
     Route: 048
  8. PREDNISONE [Concomitant]
     Active Substance: PREDNISONE

REACTIONS (23)
  - Fall [Unknown]
  - Plasma cell myeloma [Not Recovered/Not Resolved]
  - Pain [Not Recovered/Not Resolved]
  - Gait disturbance [Not Recovered/Not Resolved]
  - Nausea [Not Recovered/Not Resolved]
  - Diarrhoea [Not Recovered/Not Resolved]
  - Asthenia [Not Recovered/Not Resolved]
  - Alopecia [Not Recovered/Not Resolved]
  - Acne [Not Recovered/Not Resolved]
  - Rash [Not Recovered/Not Resolved]
  - Dental caries [Unknown]
  - Abscess [Recovered/Resolved]
  - Incoherent [Recovered/Resolved]
  - Dehydration [Recovered/Resolved]
  - Urinary incontinence [Not Recovered/Not Resolved]
  - Anal incontinence [Not Recovered/Not Resolved]
  - Swelling [Recovered/Resolved]
  - Tooth loss [Unknown]
  - Fracture [Unknown]
  - Neoplasm malignant [Unknown]
  - Urine odour abnormal [Unknown]
  - Alopecia [Unknown]
  - Incontinence [Unknown]

NARRATIVE: CASE EVENT DATE: 20200430
